FAERS Safety Report 5532819-8 (Version None)
Quarter: 2007Q4

REPORT INFORMATION
  Report Type: 
  Country: None (occurrence: None)
  Receive Date: 20071130
  Receipt Date: 20071130
  Transmission Date: 20080405
  Serious: Yes (Hospitalization, Disabling)
  Sender: FDA-Public Use
  Company Number: None

PATIENT
  Sex: Male
  Weight: 127.0072 kg

DRUGS (1)
  1. AMBIEN [Suspect]
     Indication: SLEEP STUDY
     Dosage: 5MG ONCE PO
     Route: 048
     Dates: start: 20071128, end: 20071128

REACTIONS (9)
  - ABNORMAL SLEEP-RELATED EVENT [None]
  - DISCOMFORT [None]
  - FEELING ABNORMAL [None]
  - HALLUCINATION, VISUAL [None]
  - OXYGEN SATURATION DECREASED [None]
  - PAIN [None]
  - SCREAMING [None]
  - SOMNOLENCE [None]
  - SUFFOCATION FEELING [None]
